FAERS Safety Report 10507577 (Version 1)
Quarter: 2014Q4

REPORT INFORMATION
  Report Type: Spontaneous
  Country: US (occurrence: None)
  Receive Date: 20141008
  Receipt Date: 20141008
  Transmission Date: 20150528
  Serious: Yes (Life-Threatening)
  Sender: FDA-Public Use
  Company Number: None

PATIENT
  Age: 75 Year
  Sex: Male

DRUGS (1)
  1. INSULIN [Suspect]
     Active Substance: INSULIN NOS

REACTIONS (3)
  - Incorrect dose administered [None]
  - Device issue [None]
  - Hypoglycaemia [None]

NARRATIVE: CASE EVENT DATE: 20140924
